FAERS Safety Report 6657727-0 (Version None)
Quarter: 2010Q1

REPORT INFORMATION
  Report Type: 
  Country: None (occurrence: None)
  Receive Date: 20100319
  Receipt Date: 20090731
  Transmission Date: 20100710
  Serious: Yes (Other)
  Sender: FDA-Public Use
  Company Number: 2008SP009761

PATIENT
  Age: 61 Year
  Sex: Male
  Weight: 97.5234 kg

DRUGS (3)
  1. PEG-INTRON [Suspect]
     Indication: HEPATITIS C
     Dosage: ; SC
     Route: 058
     Dates: start: 20070901, end: 20080914
  2. REBETOL [Suspect]
     Indication: HEPATITIS C
     Dosage: ; PO
     Route: 048
     Dates: start: 20070901, end: 20080914
  3. MILK THISTLE [Concomitant]

REACTIONS (30)
  - ABDOMINAL DISTENSION [None]
  - ACNE [None]
  - ALOPECIA [None]
  - CHILLS [None]
  - DEPRESSION [None]
  - DRY EYE [None]
  - EMOTIONAL DISORDER [None]
  - FAT TISSUE INCREASED [None]
  - FATIGUE [None]
  - HEADACHE [None]
  - HYPERHIDROSIS [None]
  - IMMUNE SYSTEM DISORDER [None]
  - INFLUENZA LIKE ILLNESS [None]
  - INJECTION SITE REACTION [None]
  - JOINT SWELLING [None]
  - METABOLIC DISORDER [None]
  - MUSCULAR WEAKNESS [None]
  - NAUSEA [None]
  - PAIN [None]
  - SKIN ATROPHY [None]
  - SKIN DISORDER [None]
  - SKIN LESION [None]
  - SLUGGISHNESS [None]
  - SPIDER VEIN [None]
  - STRESS [None]
  - SUICIDAL IDEATION [None]
  - SWELLING FACE [None]
  - VEIN PAIN [None]
  - VOMITING [None]
  - WEIGHT INCREASED [None]
